FAERS Safety Report 5020623-9 (Version None)
Quarter: 2006Q2

REPORT INFORMATION
  Report Type: 
  Country: None (occurrence: None)
  Receive Date: 20060607
  Receipt Date: 20060316
  Transmission Date: 20061013
  Serious: Yes (Life-Threatening, Hospitalization, Disabling, Other)
  Sender: FDA-Public Use
  Company Number: US-MERCK-0603USA02812

PATIENT
  Age: 53 Year
  Sex: Female
  Weight: 57 kg

DRUGS (18)
  1. VYTORIN [Suspect]
     Indication: HYPERLIPIDAEMIA
     Route: 048
     Dates: start: 20051201, end: 20060220
  2. VYTORIN [Suspect]
     Route: 048
     Dates: start: 20041201, end: 20051201
  3. VYTORIN [Suspect]
     Indication: CORONARY ARTERY DISEASE
     Route: 048
     Dates: start: 20051201, end: 20060220
  4. VYTORIN [Suspect]
     Route: 048
     Dates: start: 20041201, end: 20051201
  5. FOSAMAX [Concomitant]
     Indication: OSTEOPOROSIS
     Route: 048
     Dates: end: 20060201
  6. ALTACE [Concomitant]
     Indication: HYPERTENSION
     Route: 048
     Dates: end: 20060201
  7. ALTACE [Concomitant]
     Route: 048
     Dates: start: 20060222
  8. TOPROL-XL [Concomitant]
     Indication: CORONARY ARTERY DISEASE
     Route: 048
     Dates: end: 20060201
  9. TOPROL-XL [Concomitant]
     Route: 048
     Dates: start: 20060222
  10. ACTOS [Concomitant]
     Indication: DIABETES MELLITUS
     Route: 048
     Dates: end: 20060201
  11. VERELAN [Concomitant]
     Indication: HYPERTENSION
     Route: 048
     Dates: end: 20060201
  12. VERELAN [Concomitant]
     Route: 048
     Dates: start: 20060222
  13. ASPIRIN [Concomitant]
     Route: 065
     Dates: end: 20060201
  14. GLUCOPHAGE [Concomitant]
     Route: 065
     Dates: end: 20060201
  15. GLUCOTROL XL [Concomitant]
     Route: 065
     Dates: end: 20060217
  16. LEVOTHYROXINE SODIUM [Concomitant]
     Route: 065
     Dates: end: 20060201
  17. LEVOTHYROXINE SODIUM [Concomitant]
     Route: 065
     Dates: start: 20060222
  18. LASIX [Concomitant]
     Route: 065
     Dates: end: 20060201

REACTIONS (8)
  - CONSTIPATION [None]
  - MYOPATHY [None]
  - NAUSEA [None]
  - NERVOUS SYSTEM DISORDER [None]
  - RENAL FAILURE ACUTE [None]
  - RHABDOMYOLYSIS [None]
  - URINARY TRACT INFECTION [None]
  - VOMITING [None]
